FAERS Safety Report 10809312 (Version 3)
Quarter: 2015Q2

REPORT INFORMATION
  Report Type: Spontaneous
  Country: US (occurrence: None)
  Receive Date: 20150212
  Receipt Date: 20150422
  Transmission Date: 20150821
  Serious: Yes (Death)
  Sender: FDA-Public Use
  Company Number: 1713747-2015-99953

PATIENT
  Age: 38 Year
  Sex: Female
  Weight: 66 kg

DRUGS (26)
  1. NORVASC [Concomitant]
     Active Substance: AMLODIPINE BESYLATE
  2. TUMS [Concomitant]
     Active Substance: CALCIUM CARBONATE
  3. EPOGEN [Concomitant]
     Active Substance: ERYTHROPOIETIN
  4. LOVENOX [Concomitant]
     Active Substance: ENOXAPARIN SODIUM
  5. COUMADIN [Concomitant]
     Active Substance: WARFARIN SODIUM
  6. ZOLOFT [Concomitant]
     Active Substance: SERTRALINE HYDROCHLORIDE
  7. HUMALOG [Concomitant]
     Active Substance: INSULIN LISPRO
  8. NATURALYTE [Concomitant]
     Active Substance: ACETIC ACID\SODIUM ACETATE
  9. GRANUFLO [Concomitant]
     Active Substance: ACETIC ACID\SODIUM ACETATE
  10. TRAZODONE [Concomitant]
     Active Substance: TRAZODONE HYDROCHLORIDE
  11. LANTUS [Concomitant]
     Active Substance: INSULIN GLARGINE
  12. NEPHRO-CAPS [Concomitant]
  13. RENVELA [Concomitant]
     Active Substance: SEVELAMER CARBONATE
  14. 0.9% SODIUM CHLORIDE INJECTION, USP [Suspect]
     Active Substance: SODIUM CHLORIDE
     Indication: CHRONIC KIDNEY DISEASE
     Dosage: HEMODIALYSIS
     Dates: start: 20131014
  15. FMC BLOOD LINES [Concomitant]
  16. ZEMPLAR [Concomitant]
     Active Substance: PARICALCITOL
  17. NEURONTIN [Concomitant]
     Active Substance: GABAPENTIN
  18. BABY ASPIRIN [Concomitant]
     Active Substance: ASPIRIN
  19. LISINOPRIL. [Concomitant]
     Active Substance: LISINOPRIL
  20. FRESENIUS 2008K DIALYSIS MACHINE [Concomitant]
  21. NORMAL SALINE [Concomitant]
     Active Substance: SODIUM CHLORIDE
  22. SODIUM BICARBONATE. [Concomitant]
     Active Substance: SODIUM BICARBONATE
  23. 180NRE OPTIFLUX [Concomitant]
  24. CALCIFEROL [Concomitant]
     Active Substance: ERGOCALCIFEROL
  25. GABAPENTIN. [Concomitant]
     Active Substance: GABAPENTIN
  26. COREG [Concomitant]
     Active Substance: CARVEDILOL

REACTIONS (10)
  - Blood pressure decreased [None]
  - Cold sweat [None]
  - Dyskinesia [None]
  - Blood pressure increased [None]
  - Heart rate increased [None]
  - Unresponsive to stimuli [None]
  - Dialysis [None]
  - Feeling abnormal [None]
  - Respiration abnormal [None]
  - Pupil fixed [None]

NARRATIVE: CASE EVENT DATE: 20131014
